FAERS Safety Report 24624804 (Version 2)
Quarter: 2025Q3

REPORT INFORMATION
  Report Type: Spontaneous
  Country: JP (occurrence: JP)
  Receive Date: 20241115
  Receipt Date: 20250809
  Transmission Date: 20251020
  Serious: Yes (Other)
  Sender: ALEXION PHARMACEUTICALS
  Company Number: JP-ASTRAZENECA-240120790_012620_P_1

PATIENT
  Age: 53 Year
  Sex: Female

DRUGS (8)
  1. FULVESTRANT [Suspect]
     Active Substance: FULVESTRANT
     Indication: Breast cancer
  2. FULVESTRANT [Suspect]
     Active Substance: FULVESTRANT
  3. TRUQAP [Suspect]
     Active Substance: CAPIVASERTIB
     Indication: Breast cancer
  4. TRUQAP [Suspect]
     Active Substance: CAPIVASERTIB
  5. TRUQAP [Suspect]
     Active Substance: CAPIVASERTIB
  6. MIYA-BM [Concomitant]
     Active Substance: CLOSTRIDIUM BUTYRICUM SPORES STRAIN M-55
     Indication: Liver function test abnormal
     Route: 065
  7. BILASTINE [Concomitant]
     Active Substance: BILASTINE
     Indication: Liver function test abnormal
     Route: 065
  8. URSO [Concomitant]
     Active Substance: URSODIOL
     Indication: Liver function test abnormal
     Route: 065

REACTIONS (1)
  - Renal impairment [Recovered/Resolved]

NARRATIVE: CASE EVENT DATE: 20240926
